FAERS Safety Report 4445104-2 (Version None)
Quarter: 2004Q3

REPORT INFORMATION
  Report Type: 
  Country: None (occurrence: None)
  Receive Date: 20040907
  Receipt Date: 20040820
  Transmission Date: 20050211
  Serious: Yes (Death)
  Sender: FDA-Public Use
  Company Number: L04-ESP-03962-29

PATIENT
  Age: 63 Year
  Sex: Male

DRUGS (2)
  1. CITALOPRAM [Suspect]
  2. MEPIVACAINE [Concomitant]

REACTIONS (3)
  - ACCIDENT [None]
  - ROAD TRAFFIC ACCIDENT [None]
  - TOXICOLOGIC TEST ABNORMAL [None]
